FAERS Safety Report 23915175 (Version 1)
Quarter: 2024Q2

REPORT INFORMATION
  Report Type: Spontaneous
  Country: US (occurrence: US)
  Receive Date: 20240529
  Receipt Date: 20240529
  Transmission Date: 20240716
  Serious: Yes (Hospitalization, Other)
  Sender: FDA-Public Use
  Company Number: US-009507513-2405USA007046

PATIENT
  Age: 55 Year
  Sex: Female

DRUGS (12)
  1. PRIMAXIN IV [Suspect]
     Active Substance: CILASTATIN SODIUM\IMIPENEM
     Indication: Vascular device infection
     Dosage: UNK
  2. PRIMAXIN IV [Suspect]
     Active Substance: CILASTATIN SODIUM\IMIPENEM
     Indication: Vascular device infection
  3. PRIMAXIN IV [Suspect]
     Active Substance: CILASTATIN SODIUM\IMIPENEM
     Indication: Endocarditis
  4. PRIMAXIN IV [Suspect]
     Active Substance: CILASTATIN SODIUM\IMIPENEM
     Indication: Lactobacillus bacteraemia
  5. VANCOMYCIN [Suspect]
     Active Substance: VANCOMYCIN
     Indication: Vascular device infection
     Dosage: UNK
  6. VANCOMYCIN [Suspect]
     Active Substance: VANCOMYCIN
     Indication: Vascular device infection
  7. VANCOMYCIN [Suspect]
     Active Substance: VANCOMYCIN
     Indication: Endocarditis
  8. VANCOMYCIN [Suspect]
     Active Substance: VANCOMYCIN
     Indication: Lactobacillus bacteraemia
  9. PENICILLIN [Suspect]
     Active Substance: PENICILLIN
     Indication: Vascular device infection
     Dosage: UNK
  10. PENICILLIN [Suspect]
     Active Substance: PENICILLIN
     Indication: Vascular device infection
  11. PENICILLIN [Suspect]
     Active Substance: PENICILLIN
     Indication: Endocarditis
  12. PENICILLIN [Suspect]
     Active Substance: PENICILLIN
     Indication: Lactobacillus bacteraemia

REACTIONS (2)
  - Thrombocytopenia [Recovered/Resolved]
  - Product use in unapproved indication [Unknown]
